FAERS Safety Report 9407371 (Version 1)
Quarter: 2013Q3

REPORT INFORMATION
  Report Type: Spontaneous
  Country: US (occurrence: None)
  Receive Date: 20130717
  Receipt Date: 20130717
  Transmission Date: 20140515
  Serious: Yes (Death)
  Sender: FDA-Public Use
  Company Number: None

PATIENT
  Age: 62 Year
  Sex: Male

DRUGS (9)
  1. ZELBORAF [Suspect]
     Indication: MALIGNANT MELANOMA
     Dosage: 960MG Q12HR  PO
     Route: 048
     Dates: start: 20130322, end: 20130701
  2. LISINOPRIL [Concomitant]
  3. METOPROLOL [Concomitant]
  4. VENLAFAXINE [Concomitant]
  5. OXYCODONE [Concomitant]
  6. WARFARIN [Concomitant]
  7. PROMETHAZINE [Concomitant]
  8. LANTUS [Concomitant]
  9. FENTANYL [Concomitant]

REACTIONS (1)
  - Disease progression [None]
